FAERS Safety Report 11434482 (Version 3)
Quarter: 2015Q4

REPORT INFORMATION
  Report Type: Report from Study
  Country: JP (occurrence: JP)
  Receive Date: 20150831
  Receipt Date: 20151222
  Transmission Date: 20160304
  Serious: Yes (Death, Life-Threatening, Hospitalization)
  Sender: FDA-Public Use
  Company Number: JP-ACTELION-A-CH2015-122905

PATIENT
  Age: 42 Year
  Sex: Female

DRUGS (19)
  1. TORASEMIDE [Concomitant]
     Active Substance: TORSEMIDE
  2. AZOSEMIDE [Concomitant]
     Active Substance: AZOSEMIDE
  3. CLOTIAZEPAM [Concomitant]
     Active Substance: CLOTIAZEPAM
  4. SALMETEROL/FLUTICASONPROPIONAAT [Concomitant]
     Active Substance: SALMETEROL
  5. VELETRI [Suspect]
     Active Substance: EPOPROSTENOL
     Indication: PULMONARY ARTERIAL HYPERTENSION
     Dosage: 93.4 NG/KG, PER MIN
     Route: 042
     Dates: start: 20140806
  6. OXYGEN. [Concomitant]
     Active Substance: OXYGEN
  7. CEFAZOLIN [Suspect]
     Active Substance: CEFAZOLIN
     Indication: DEVICE RELATED INFECTION
     Dosage: 4 G, UNK
     Route: 042
     Dates: start: 20141009, end: 20141021
  8. VELETRI [Suspect]
     Active Substance: EPOPROSTENOL
     Dosage: 90.9 NG/KG, PER MIN
     Route: 042
     Dates: end: 20141125
  9. TADALAFIL [Concomitant]
     Active Substance: TADALAFIL
  10. MONTELUKAST [Concomitant]
     Active Substance: MONTELUKAST SODIUM
  11. POTASSIUM CHLORIDE. [Concomitant]
     Active Substance: POTASSIUM CHLORIDE
  12. FUROSEMIDE. [Concomitant]
     Active Substance: FUROSEMIDE
  13. CARBOCISTEINE [Concomitant]
     Active Substance: CARBOCYSTEINE
  14. DIMETICONE [Concomitant]
     Active Substance: DIMETHICONE
  15. TRACLEER [Suspect]
     Active Substance: BOSENTAN
     Indication: PULMONARY ARTERIAL HYPERTENSION
     Route: 048
  16. SODIUM RABEPRAZOLE [Concomitant]
     Active Substance: RABEPRAZOLE SODIUM
  17. ZOLPIDEM TARTATE [Concomitant]
     Active Substance: ZOLPIDEM TARTRATE
  18. METOCLOPRAMIDE. [Concomitant]
     Active Substance: METOCLOPRAMIDE
  19. CLOSTRIDIUM BUTYRICUM [Concomitant]
     Active Substance: CLOSTRIDIUM BUTYRICUM SPORES STRAIN M-55

REACTIONS (14)
  - Aggression [Not Recovered/Not Resolved]
  - Hepatic function abnormal [Recovering/Resolving]
  - Cardio-respiratory arrest [Fatal]
  - Hypercalcaemia [Not Recovered/Not Resolved]
  - Depression [Not Recovered/Not Resolved]
  - Arthralgia [Unknown]
  - Concomitant disease aggravated [Unknown]
  - Right ventricular failure [Fatal]
  - Anaemia [Not Recovered/Not Resolved]
  - Restlessness [Not Recovered/Not Resolved]
  - Device related infection [Recovered/Resolved]
  - Flushing [Unknown]
  - Gamma-glutamyltransferase increased [Recovering/Resolving]
  - Atrial flutter [Fatal]

NARRATIVE: CASE EVENT DATE: 201408
